FAERS Safety Report 4711991-3 (Version None)
Quarter: 2005Q3

REPORT INFORMATION
  Report Type: 
  Country: None (occurrence: None)
  Receive Date: 20050712
  Receipt Date: 20050520
  Transmission Date: 20060218
  Serious: Yes (Hospitalization)
  Sender: FDA-Public Use
  Company Number: JP-SOLVAY-00305001951

PATIENT
  Age: 67 Year
  Sex: Female
  Weight: 39 kg

DRUGS (14)
  1. MIANSERIN [Concomitant]
     Indication: INSOMNIA
     Dosage: DAILY DOSE: 10 MILLIGRAM(S)
     Route: 065
  2. MIANSERIN [Concomitant]
     Dosage: DAILY DOSE: 20 MILLIGRAM(S)
     Route: 065
  3. DEPROMEL 25 [Suspect]
     Indication: DEPRESSION
     Dosage: DAILY DOSE:  UNKNOWN
     Route: 048
     Dates: end: 20030301
  4. DEPROMEL 25 [Suspect]
     Dosage: DAILY DOSE: 150 MILLIGRAM(S)
     Route: 048
     Dates: start: 20030320, end: 20030506
  5. MYSLEE [Suspect]
     Indication: DEPRESSION
     Dosage: DAILY DOSE: 10 MILLIGRAM(S)
     Route: 048
     Dates: start: 20030320, end: 20030419
  6. MYSLEE [Suspect]
     Dosage: DAILY DOSE: 10 MILLIGRAM(S)
     Route: 048
     Dates: start: 20030507
  7. DESYREL [Concomitant]
     Indication: DELIRIUM
     Dosage: DAILY DOSE: 50 MILLIGRAM(S)
     Route: 048
     Dates: start: 20030324, end: 20030327
  8. TETRAMIDE [Concomitant]
     Indication: DELIRIUM
     Dosage: DAILY DOSE: 30 MILLIGRAM(S)
     Route: 048
     Dates: start: 20030328
  9. TOLEDOMIN [Concomitant]
     Indication: DEPRESSION
     Dosage: DAILY DOSE: 25 MILLIGRAM(S)
     Route: 048
     Dates: start: 20030501
  10. LENDORMIN [Concomitant]
     Indication: INSOMNIA
     Dosage: DAILY DOSE: .25 MILLIGRAM(S)
     Route: 048
  11. SOLONAX [Concomitant]
     Indication: INSOMNIA
     Dosage: DAILY DOSE: .4 MILLIGRAM(S)
     Route: 048
  12. MAGNESIUM OXIDE [Concomitant]
     Indication: CONSTIPATION
     Dosage: DAILY DOSE: .5 GRAM(S)
     Route: 048
  13. PURSENNID [Concomitant]
     Indication: CONSTIPATION
     Dosage: DAILY DOSE: 12 MILLIGRAM(S)
     Route: 048
     Dates: start: 20030320, end: 20030507
  14. EVAMYL [Concomitant]
     Indication: INSOMNIA
     Dosage: DAILY DOSE: 1 MILLIGRAM(S)
     Route: 048
     Dates: start: 20030420

REACTIONS (9)
  - ANTEROGRADE AMNESIA [None]
  - DECREASED APPETITE [None]
  - DECREASED INTEREST [None]
  - DELIRIUM [None]
  - DISINHIBITION [None]
  - DRUG INTERACTION [None]
  - HYPOMANIA [None]
  - SLEEP DISORDER [None]
  - SUICIDAL IDEATION [None]
